FAERS Safety Report 25250507 (Version 1)
Quarter: 2025Q2

REPORT INFORMATION
  Report Type: Spontaneous
  Country: US (occurrence: None)
  Receive Date: 20250428
  Receipt Date: 20250428
  Transmission Date: 20250716
  Serious: Yes (Hospitalization, Disabling)
  Sender: FDA-CTU
  Company Number: None

PATIENT
  Age: 30 Year
  Sex: Female
  Weight: 75.75 kg

DRUGS (3)
  1. MIRENA [Suspect]
     Active Substance: LEVONORGESTREL
     Indication: Contraception
     Dates: start: 20201001
  2. Sertraline 100mg once daily Mirena [Concomitant]
     Dosage: FREQUENCY : DAILY;?
  3. VITAMINS [Concomitant]
     Active Substance: VITAMINS

REACTIONS (6)
  - Vaginal haemorrhage [None]
  - Abdominal pain lower [None]
  - Vulvovaginal pain [None]
  - Vaginal haemorrhage [None]
  - Labour pain [None]
  - Device dislocation [None]

NARRATIVE: CASE EVENT DATE: 20250421
